FAERS Safety Report 25615293 (Version 2)
Quarter: 2025Q3

REPORT INFORMATION
  Report Type: Spontaneous
  Country: EU (occurrence: EU)
  Receive Date: 20250729
  Receipt Date: 20250814
  Transmission Date: 20251021
  Serious: No
  Sender: GLAXOSMITHKLINE
  Company Number: EU-GSK-BE2025EME091405

PATIENT
  Sex: Female

DRUGS (2)
  1. IMITREX [Suspect]
     Active Substance: SUMATRIPTAN SUCCINATE
     Indication: Product used for unknown indication
  2. IMITREX [Suspect]
     Active Substance: SUMATRIPTAN SUCCINATE

REACTIONS (2)
  - Incorrect dose administered [Unknown]
  - Product complaint [Unknown]
